FAERS Safety Report 4757528-4 (Version None)
Quarter: 2005Q3

REPORT INFORMATION
  Report Type: 
  Country: None (occurrence: None)
  Receive Date: 20050831
  Receipt Date: 20050310
  Transmission Date: 20060218
  Serious: Yes (Hospitalization, Other)
  Sender: FDA-Public Use
  Company Number: US-MERCK-0503USA02001

PATIENT
  Age: 73 Year
  Sex: Male
  Weight: 66 kg

DRUGS (12)
  1. ASPIRIN [Concomitant]
     Indication: CEREBROVASCULAR ACCIDENT
     Route: 048
     Dates: start: 20020901
  2. AGGRENOX [Concomitant]
     Indication: TRANSIENT ISCHAEMIC ATTACK
     Route: 048
  3. FOSAMAX [Concomitant]
     Indication: OSTEOPOROSIS
     Route: 048
  4. ZANTAC [Concomitant]
     Indication: GASTROOESOPHAGEAL REFLUX DISEASE
     Route: 048
     Dates: start: 20031201
  5. TYLENOL [Concomitant]
     Route: 048
  6. GLUCOSAMINE SULFATE [Concomitant]
     Route: 048
  7. CALCIUM CITRATE AND CHOLECALCIFEROL [Concomitant]
     Route: 048
  8. HYDRODIURIL [Concomitant]
     Route: 048
  9. [THERAPY UNSPECIFIED] [Concomitant]
     Route: 065
  10. VIOXX [Suspect]
     Indication: ARTHRITIS
     Route: 048
     Dates: start: 20021101, end: 20040901
  11. VIOXX [Suspect]
     Route: 048
     Dates: start: 20021101, end: 20040901
  12. LIPITOR [Concomitant]
     Indication: BLOOD CHOLESTEROL INCREASED
     Route: 048
     Dates: start: 20010101

REACTIONS (24)
  - ATHEROSCLEROSIS [None]
  - BACK PAIN [None]
  - CARDIAC MURMUR [None]
  - CAROTID ARTERY OCCLUSION [None]
  - CAROTID ARTERY STENOSIS [None]
  - CAROTID BRUIT [None]
  - CEREBROVASCULAR ACCIDENT [None]
  - CERVICAL MYELOPATHY [None]
  - CONFUSIONAL STATE [None]
  - DIZZINESS [None]
  - EMOTIONAL DISTRESS [None]
  - ERECTILE DYSFUNCTION [None]
  - EXOSTOSIS [None]
  - FALL [None]
  - HAEMORRHOIDS [None]
  - HYPERTENSION [None]
  - MEDIASTINAL MASS [None]
  - MYOCARDIAL INFARCTION [None]
  - PARAESTHESIA [None]
  - POLYMYALGIA [None]
  - RENAL FAILURE [None]
  - THROMBOSIS [None]
  - TRANSIENT ISCHAEMIC ATTACK [None]
  - VIRAL INFECTION [None]
